FAERS Safety Report 6916561-4 (Version None)
Quarter: 2010Q3

REPORT INFORMATION
  Report Type: 
  Country: None (occurrence: None)
  Receive Date: 20100810
  Receipt Date: 20100730
  Transmission Date: 20110219
  Serious: Yes (Hospitalization, Other)
  Sender: FDA-Public Use
  Company Number: US-AMGEN-QUU405685

PATIENT
  Sex: Female
  Weight: 148.5 kg

DRUGS (23)
  1. ENBREL [Suspect]
     Indication: RHEUMATOID ARTHRITIS
     Route: 058
     Dates: start: 20080501
  2. ENBREL [Suspect]
     Indication: PSORIATIC ARTHROPATHY
  3. ENBREL [Suspect]
     Indication: PSORIASIS
  4. ALBUTEROL [Concomitant]
  5. TAMOXIFEN [Concomitant]
     Dates: start: 20060601, end: 20100201
  6. CALCIUM CITRATE [Concomitant]
     Route: 048
  7. CIPROFLOXACIN [Concomitant]
     Route: 048
  8. DOCUSATE SODIUM [Concomitant]
     Route: 048
  9. EPINEPHRINE [Concomitant]
     Route: 030
  10. ZETIA [Concomitant]
     Route: 048
  11. FLUTICASONE/SALMETEROL [Concomitant]
     Route: 055
  12. ACETAMINOPHEN AND HYDROCODONE BITARTRATE [Concomitant]
     Route: 048
  13. IRON [Concomitant]
     Route: 048
  14. LANSOPRAZOLE [Concomitant]
     Route: 048
  15. LATANOPROST [Concomitant]
     Route: 047
  16. FEMARA [Concomitant]
     Route: 048
  17. SYNTHROID [Concomitant]
     Route: 048
  18. NORTRIPTYLINE [Concomitant]
     Route: 048
  19. ONDANSETRON [Concomitant]
     Route: 048
  20. PROPOXYPHENE NAPSYLATE W/ ACETAMINOPHEN [Concomitant]
     Route: 048
  21. TOPAMAX [Concomitant]
     Route: 048
  22. ASCORBIC ACID [Concomitant]
     Route: 048
  23. VITAMIN D [Concomitant]

REACTIONS (20)
  - ARTHRALGIA [None]
  - ASTHENIA [None]
  - AUTOIMMUNE DISORDER [None]
  - CELLULITIS [None]
  - CHILLS [None]
  - COGNITIVE DISORDER [None]
  - DIZZINESS [None]
  - EPISTAXIS [None]
  - HEADACHE [None]
  - HYPERCALCAEMIA [None]
  - MALIGNANT NEOPLASM PROGRESSION [None]
  - NAUSEA [None]
  - NEPHROLITHIASIS [None]
  - PARATHYROID DISORDER [None]
  - PSORIASIS [None]
  - SLEEP APNOEA SYNDROME [None]
  - SLEEP DISORDER [None]
  - THERAPEUTIC RESPONSE DECREASED [None]
  - VOMITING [None]
  - XEROSIS [None]
